FAERS Safety Report 6832933-0 (Version None)
Quarter: 2010Q3

REPORT INFORMATION
  Report Type: 
  Country: None (occurrence: None)
  Receive Date: 20100712
  Receipt Date: 20070319
  Transmission Date: 20110219
  Serious: No
  Sender: FDA-Public Use
  Company Number: US-PFIZER INC-2007022101

PATIENT
  Sex: Female
  Weight: 62.6 kg

DRUGS (5)
  1. CHANTIX [Suspect]
     Indication: SMOKING CESSATION THERAPY
     Dates: start: 20070314
  2. ATENOLOL [Concomitant]
     Indication: HYPERTENSION
  3. EFFEXOR [Concomitant]
  4. STRATTERA [Concomitant]
  5. PREVACID [Concomitant]

REACTIONS (3)
  - FATIGUE [None]
  - INSOMNIA [None]
  - NAUSEA [None]
